FAERS Safety Report 7336185-7 (Version None)
Quarter: 2011Q1

REPORT INFORMATION
  Report Type: 
  Country: None (occurrence: None)
  Receive Date: 20110307
  Receipt Date: 20110301
  Transmission Date: 20110831
  Serious: Yes (Other)
  Sender: FDA-Public Use
  Company Number: US-CEPHALON-2011000984

PATIENT

DRUGS (1)
  1. NUVIGIL [Suspect]
     Route: 048

REACTIONS (4)
  - DRY MOUTH [None]
  - INFLUENZA LIKE ILLNESS [None]
  - MOUTH ULCERATION [None]
  - HEADACHE [None]
